FAERS Safety Report 5884466-6 (Version None)
Quarter: 2008Q3

REPORT INFORMATION
  Report Type: 
  Country: None (occurrence: None)
  Receive Date: 20080916
  Receipt Date: 20080905
  Transmission Date: 20090109
  Serious: Yes (Hospitalization)
  Sender: FDA-Public Use
  Company Number: BR-BAYER-BR-2007-037004

PATIENT
  Age: 40 Year
  Sex: Male

DRUGS (6)
  1. BETAFERON [Suspect]
     Indication: MULTIPLE SCLEROSIS
     Route: 058
     Dates: start: 20060512, end: 20080101
  2. BACLOFEN [Concomitant]
     Indication: DRUG USE FOR UNKNOWN INDICATION
     Dosage: TOTAL DAILY DOSE: 30 MG  UNIT DOSE: 10 MG
     Route: 048
     Dates: start: 20070901
  3. VITAMIN B-12 [Concomitant]
     Indication: DRUG USE FOR UNKNOWN INDICATION
     Route: 065
     Dates: start: 20070901
  4. ACETAMINOPHEN [Concomitant]
     Indication: PAIN
     Route: 048
  5. DIPIRONA [Concomitant]
     Indication: PAIN
     Route: 048
  6. VITAMIN TAB [Concomitant]
     Indication: DRUG USE FOR UNKNOWN INDICATION
     Route: 065
     Dates: start: 20071201

REACTIONS (12)
  - DYSARTHRIA [None]
  - FORMICATION [None]
  - GAIT DISTURBANCE [None]
  - INFLAMMATION [None]
  - MONOPLEGIA [None]
  - MULTIPLE SCLEROSIS [None]
  - MULTIPLE SCLEROSIS RELAPSE [None]
  - MUSCLE RIGIDITY [None]
  - MUSCLE TIGHTNESS [None]
  - MUSCULAR WEAKNESS [None]
  - PAIN [None]
  - VOMITING [None]
